FAERS Safety Report 9306921 (Version 1)
Quarter: 2013Q1

REPORT INFORMATION
  Report Type: Spontaneous
  Country: FR (occurrence: None)
  Receive Date: 20130215
  Receipt Date: 20130215
  Transmission Date: 20140127
  Serious: Yes (Hospitalization)
  Sender: FDA-Public Use
  Company Number: MPSI-1000204

PATIENT
  Age: 6 Year
  Sex: Male
  Weight: 17 kg

DRUGS (2)
  1. ALDURAZYME (LARONIDASE) CONCENTRATE FOR SOLUTION FOR INFUSION [Suspect]
     Indication: MUCOPOLYSACCHARIDOSIS I
     Route: 042
     Dates: start: 20050510
  2. LOXEN (NICARDIPINE HYDROCHLORIDE) [Concomitant]

REACTIONS (7)
  - Pulmonary arterial hypertension [None]
  - Malaise [None]
  - Drug ineffective [None]
  - Respiratory distress [None]
  - Sleep apnoea syndrome [None]
  - Mucopolysaccharidosis I [None]
  - Hypercapnia [None]
